FAERS Safety Report 5762824-8 (Version None)
Quarter: 2008Q2

REPORT INFORMATION
  Report Type: 
  Country: None (occurrence: None)
  Receive Date: 20080609
  Receipt Date: 20080605
  Transmission Date: 20081010
  Serious: Yes (Death, Hospitalization)
  Sender: FDA-Public Use
  Company Number: CN-BRISTOL-MYERS SQUIBB COMPANY-14217632

PATIENT
  Age: 51 Year
  Sex: Female

DRUGS (2)
  1. PACLITAXEL [Suspect]
     Indication: BREAST CANCER METASTATIC
     Dosage: PACLITAXEL INJECTION,80 MG/M2 WEEKLY FOR THREE WEEKS OF EACH FOUR WEEK CYCLE FROM 31-JUL-2007.
     Route: 042
     Dates: start: 20070731, end: 20070731
  2. LAPATINIB [Suspect]
     Indication: BREAST CANCER METASTATIC
     Dosage: LAPATINIB UNBLINDED ON 29-SEP-2007, INTERRUPTED ON 25-OCT-2007
     Dates: start: 20070731

REACTIONS (2)
  - PNEUMONIA [None]
  - PULMONARY EMBOLISM [None]
